FAERS Safety Report 18531806 (Version 1)
Quarter: 2020Q4

REPORT INFORMATION
  Report Type: Spontaneous
  Country: CN (occurrence: CN)
  Receive Date: 20201123
  Receipt Date: 20201123
  Transmission Date: 20210114
  Serious: Yes (Other)
  Sender: FDA-Public Use
  Company Number: CN-ROCHE-2714246

PATIENT
  Age: 47 Year
  Sex: Female

DRUGS (21)
  1. AVASTIN [Suspect]
     Active Substance: BEVACIZUMAB
     Route: 065
     Dates: start: 201903
  2. ICOTINIB [Concomitant]
     Active Substance: ICOTINIB
     Indication: LUNG ADENOCARCINOMA
     Dates: start: 201804
  3. PACLITAXEL ALBUMIN [Concomitant]
     Active Substance: PACLITAXEL
     Indication: LUNG ADENOCARCINOMA
     Dates: start: 20200320
  4. ICOTINIB [Concomitant]
     Active Substance: ICOTINIB
     Indication: SMALL CELL LUNG CANCER
     Dates: start: 201903, end: 201907
  5. NIVOLUMAB [Concomitant]
     Active Substance: NIVOLUMAB
     Indication: LUNG ADENOCARCINOMA
     Dates: start: 201910
  6. NIVOLUMAB [Concomitant]
     Active Substance: NIVOLUMAB
     Indication: SMALL CELL LUNG CANCER
     Dates: start: 20200203, end: 20200318
  7. IRINOTECAN [Concomitant]
     Active Substance: IRINOTECAN
     Indication: SMALL CELL LUNG CANCER
  8. ANLOTINIB HYDROCHLORIDE [Concomitant]
     Active Substance: CATEQUENTINIB DIHYDROCHLORIDE
     Indication: LUNG ADENOCARCINOMA
  9. ANLOTINIB HYDROCHLORIDE [Concomitant]
     Active Substance: CATEQUENTINIB DIHYDROCHLORIDE
     Indication: SMALL CELL LUNG CANCER
  10. IRINOTECAN [Concomitant]
     Active Substance: IRINOTECAN
     Indication: LUNG ADENOCARCINOMA
     Dates: start: 20200203, end: 20200318
  11. TECENTRIQ [Suspect]
     Active Substance: ATEZOLIZUMAB
     Indication: LUNG ADENOCARCINOMA
     Route: 065
  12. AVASTIN [Suspect]
     Active Substance: BEVACIZUMAB
     Indication: LUNG ADENOCARCINOMA
     Route: 065
     Dates: start: 201709, end: 201801
  13. CATEQUENTINIB. [Concomitant]
     Active Substance: CATEQUENTINIB
     Indication: LUNG ADENOCARCINOMA
     Dates: start: 20200203, end: 20200318
  14. CATEQUENTINIB. [Concomitant]
     Active Substance: CATEQUENTINIB
     Indication: SMALL CELL LUNG CANCER
  15. AVASTIN [Suspect]
     Active Substance: BEVACIZUMAB
     Indication: SMALL CELL LUNG CANCER
     Route: 065
     Dates: start: 201802, end: 201804
  16. PEMETREXED. [Concomitant]
     Active Substance: PEMETREXED
     Indication: LUNG ADENOCARCINOMA
     Dates: start: 201709, end: 201801
  17. PEMETREXED. [Concomitant]
     Active Substance: PEMETREXED
     Dates: start: 20200203, end: 20200318
  18. TECENTRIQ [Suspect]
     Active Substance: ATEZOLIZUMAB
     Indication: SMALL CELL LUNG CANCER
  19. PEMETREXED. [Concomitant]
     Active Substance: PEMETREXED
     Indication: SMALL CELL LUNG CANCER
     Dates: start: 201802, end: 201804
  20. NIVOLUMAB [Concomitant]
     Active Substance: NIVOLUMAB
     Dates: start: 20200320
  21. PACLITAXEL ALBUMIN [Concomitant]
     Active Substance: PACLITAXEL
     Indication: SMALL CELL LUNG CANCER

REACTIONS (2)
  - Respiratory failure [Unknown]
  - Pneumonitis [Unknown]
